FAERS Safety Report 6686872-9 (Version None)
Quarter: 2010Q2

REPORT INFORMATION
  Report Type: 
  Country: None (occurrence: None)
  Receive Date: 20100419
  Receipt Date: 20100414
  Transmission Date: 20101027
  Serious: Yes (Hospitalization)
  Sender: FDA-Public Use
  Company Number: FR-BRISTOL-MYERS SQUIBB COMPANY-15065048

PATIENT
  Age: 73 Year
  Sex: Female

DRUGS (9)
  1. COAPROVEL FILM-COATED TABS 300/12.5 MG [Suspect]
     Dosage: 1 DF: 1 TABLET. COAPPROVEL 300MG/12.5MG
     Route: 048
     Dates: end: 20100210
  2. DIGITALINE NATIVELLE [Interacting]
     Dosage: ON 03-FEB-2010, DOSE INCREASED TWICE A DAY BY MISTAKE.
     Route: 048
     Dates: end: 20100211
  3. OMNIPAQUE 140 [Interacting]
     Dosage: 1 DF: 125-150ML SINGLE INJ.OMNIPAQUE 300MG I/ML
     Dates: start: 20100209, end: 20100209
  4. METFORMIN HCL [Interacting]
     Route: 048
     Dates: end: 20100204
  5. LEVOTHYROX [Concomitant]
     Route: 048
  6. EUPRESSYL [Concomitant]
     Route: 048
     Dates: end: 20100211
  7. LERCAN [Concomitant]
     Route: 048
     Dates: end: 20100211
  8. PREVISCAN [Concomitant]
     Indication: ATRIAL FIBRILLATION
     Dosage: 1 DF: PREVISCAN 20 MG ALTERNATING 0.5G ONE DAY AND 0.75 MG TABLET DAILY
     Route: 048
     Dates: end: 20100201
  9. HUMULIN N [Concomitant]
     Indication: TYPE 2 DIABETES MELLITUS
     Dosage: 1 DF: 100IU/ML
     Route: 058

REACTIONS (4)
  - BRADYCARDIA [None]
  - DRUG INTERACTION [None]
  - OVERDOSE [None]
  - RENAL FAILURE [None]
